FAERS Safety Report 11559249 (Version 1)
Quarter: 2015Q3

REPORT INFORMATION
  Report Type: Spontaneous
  Country: US (occurrence: US)
  Receive Date: 20150916
  Receipt Date: 20150916
  Transmission Date: 20151125
  Serious: No
  Sender: FDA-Public Use
  Company Number: US-ELI_LILLY_AND_COMPANY-US200808002015

PATIENT

DRUGS (2)
  1. ZOLEDRONIC ACID [Concomitant]
     Active Substance: ZOLEDRONIC ACID
     Dates: start: 200806
  2. FORTEO [Suspect]
     Active Substance: TERIPARATIDE
     Dosage: UNK D/F, DAILY (1/D)
     Dates: start: 200606, end: 200806

REACTIONS (5)
  - Neck pain [Recovered/Resolved]
  - Pelvic pain [Recovered/Resolved]
  - Lethargy [Unknown]
  - Feeling abnormal [Recovered/Resolved]
  - Pain in extremity [Recovered/Resolved]

NARRATIVE: CASE EVENT DATE: 200606
